FAERS Safety Report 10873228 (Version 4)
Quarter: 2015Q3

REPORT INFORMATION
  Report Type: Report from Study
  Country: MX (occurrence: MX)
  Receive Date: 20150227
  Receipt Date: 20150828
  Transmission Date: 20151125
  Serious: Yes (Hospitalization, Other)
  Sender: FDA-Public Use
  Company Number: PHHY2015MX002299

PATIENT
  Age: 39 Year
  Sex: Female

DRUGS (12)
  1. SOM230 [Suspect]
     Active Substance: PASIREOTIDE
     Dosage: 40 MG, QMO ,EVERY 28 DAYS
     Route: 030
     Dates: start: 201405, end: 201410
  2. PREDNISONE. [Concomitant]
     Active Substance: PREDNISONE
     Indication: PRODUCT USED FOR UNKNOWN INDICATION
     Route: 065
     Dates: start: 201010
  3. METFORMIN [Concomitant]
     Active Substance: METFORMIN HYDROCHLORIDE
     Indication: RENAL FAILURE
  4. LEVOTHYROXINE. [Concomitant]
     Active Substance: LEVOTHYROXINE
     Indication: HYPOPITUITARISM
     Route: 065
     Dates: start: 201010
  5. CABERGOLINE. [Concomitant]
     Active Substance: CABERGOLINE
     Indication: PRODUCT USED FOR UNKNOWN INDICATION
     Route: 065
     Dates: start: 201010
  6. SOM230 [Suspect]
     Active Substance: PASIREOTIDE
     Dosage: 40 OT, EVERY 21 DAYS
     Route: 030
     Dates: start: 201304, end: 201308
  7. SOM230 [Suspect]
     Active Substance: PASIREOTIDE
     Dosage: 40 OT, QMO
     Route: 030
     Dates: start: 201209, end: 201303
  8. SOM230 [Suspect]
     Active Substance: PASIREOTIDE
     Indication: ACROMEGALY
     Dosage: 40 MG, QMO
     Route: 030
     Dates: start: 20120401, end: 201208
  9. SOM230 [Suspect]
     Active Substance: PASIREOTIDE
     Dosage: 40 OT, QMO
     Route: 030
     Dates: start: 201309, end: 201312
  10. SOM230 [Suspect]
     Active Substance: PASIREOTIDE
     Dosage: 60 MG, EVERY 28 DAYS
     Route: 030
     Dates: start: 201411, end: 20150105
  11. METFORMIN [Concomitant]
     Active Substance: METFORMIN HYDROCHLORIDE
     Indication: DIABETES MELLITUS
     Dosage: 850 MG
     Route: 065
     Dates: start: 201010
  12. SOM230 [Suspect]
     Active Substance: PASIREOTIDE
     Dosage: 20 MG, EVERY 28 DAYS
     Route: 030

REACTIONS (17)
  - Arthralgia [Unknown]
  - Hyperglycaemia [Recovered/Resolved]
  - Blood growth hormone increased [Unknown]
  - Muscular weakness [Not Recovered/Not Resolved]
  - Constipation [Recovered/Resolved]
  - Chronic kidney disease [Recovering/Resolving]
  - Blood urea increased [Unknown]
  - High density lipoprotein increased [Unknown]
  - Hirsutism [Unknown]
  - Abdominal pain [Recovered/Resolved]
  - Diabetes mellitus [Recovering/Resolving]
  - Arachnoid cyst [Unknown]
  - Gallbladder polyp [Unknown]
  - Urinary tract infection [Recovering/Resolving]
  - Blood creatinine increased [Recovered/Resolved]
  - Pain in extremity [Not Recovered/Not Resolved]
  - Blood glucose increased [Unknown]

NARRATIVE: CASE EVENT DATE: 201205
